FAERS Safety Report 6056421-7 (Version None)
Quarter: 2009Q1

REPORT INFORMATION
  Report Type: 
  Country: None (occurrence: None)
  Receive Date: 20090129
  Receipt Date: 20081229
  Transmission Date: 20090719
  Serious: No
  Sender: FDA-Public Use
  Company Number: US-BAYER-200840745NA

PATIENT
  Age: 21 Year
  Sex: Female

DRUGS (1)
  1. MIRENA [Suspect]
     Indication: CONTRACEPTION
     Route: 015
     Dates: start: 20080901

REACTIONS (6)
  - ACNE [None]
  - BREAST ENLARGEMENT [None]
  - GENITAL HAEMORRHAGE [None]
  - MENSTRUATION DELAYED [None]
  - VAGINAL HAEMORRHAGE [None]
  - WEIGHT INCREASED [None]
